FAERS Safety Report 6467282-6 (Version None)
Quarter: 2009Q4

REPORT INFORMATION
  Report Type: 
  Country: None (occurrence: None)
  Receive Date: 20091202
  Receipt Date: 20091119
  Transmission Date: 20100525
  Serious: Yes (Hospitalization)
  Sender: FDA-Public Use
  Company Number: ZA-BRISTOL-MYERS SQUIBB COMPANY-14299226

PATIENT
  Age: 52 Year
  Sex: Female

DRUGS (4)
  1. ABATACEPT [Suspect]
     Indication: RHEUMATOID ARTHRITIS
     Route: 058
     Dates: start: 20080519
  2. CELEBREX [Concomitant]
     Dates: start: 20071113
  3. DOXYFENE [Concomitant]
     Dates: start: 20080104
  4. ALTOSEC [Concomitant]
     Dates: start: 20071113

REACTIONS (1)
  - LOWER RESPIRATORY TRACT INFECTION [None]
